FAERS Safety Report 7774722-9 (Version None)
Quarter: 2011Q3

REPORT INFORMATION
  Report Type: 
  Country: None (occurrence: None)
  Receive Date: 20110923
  Receipt Date: 20110919
  Transmission Date: 20111222
  Serious: Yes (Hospitalization)
  Sender: FDA-Public Use
  Company Number: SE-ROCHE-803592

PATIENT
  Age: 20 Year
  Sex: Male

DRUGS (2)
  1. MALARONE [Suspect]
     Route: 065
     Dates: start: 20110910
  2. LARIAM [Suspect]
     Indication: MALARIA PROPHYLAXIS
     Route: 065
     Dates: start: 20110820, end: 20110903

REACTIONS (5)
  - HYPOAESTHESIA [None]
  - PHOTOPSIA [None]
  - NIGHTMARE [None]
  - DIARRHOEA [None]
  - CARDIAC FIBRILLATION [None]
